FAERS Safety Report 10349058 (Version 2)
Quarter: 2014Q3

REPORT INFORMATION
  Report Type: Spontaneous
  Country: US (occurrence: US)
  Receive Date: 20140729
  Receipt Date: 20140729
  Transmission Date: 20150326
  Serious: Yes (Death)
  Sender: FDA-Public Use
  Company Number: US-EXELIXIS-CABO-13003020

PATIENT
  Age: 82 Year
  Sex: Male

DRUGS (2)
  1. COMETRIQ [Suspect]
     Active Substance: CABOZANTINIB S-MALATE
     Indication: PROSTATE CANCER
     Dosage: 140 MG, QD
     Route: 048
     Dates: start: 20130614
  2. COMETRIQ [Suspect]
     Active Substance: CABOZANTINIB S-MALATE
     Dosage: 40 MG, QD
     Route: 048
     Dates: start: 20131211

REACTIONS (7)
  - Fatigue [Unknown]
  - Decreased appetite [Unknown]
  - Erythema [Unknown]
  - Nausea [Unknown]
  - Death [Fatal]
  - Skin exfoliation [Unknown]
  - Off label use [Unknown]

NARRATIVE: CASE EVENT DATE: 2013
